FAERS Safety Report 4844614-3 (Version None)
Quarter: 2005Q4

REPORT INFORMATION
  Report Type: 
  Country: None (occurrence: None)
  Receive Date: 20051125
  Receipt Date: 20051115
  Transmission Date: 20060501
  Serious: Yes (Hospitalization, Disabling)
  Sender: FDA-Public Use
  Company Number: 2005156933

PATIENT
  Age: 57 Year
  Sex: Male

DRUGS (5)
  1. ZYVOX [Suspect]
     Indication: BACTERIAL INFECTION
     Dosage: 1200 MG (600 MG, BID INTERVAL: EVERY DAY), ORAL
     Route: 048
  2. ACENOCOUMAROL (ACENOCOUMAROL) [Concomitant]
  3. ESOMEPRAZOLE (ESOMEPRAZOLE) [Concomitant]
  4. CLARITHROMYCIN [Concomitant]
  5. CIPROFLOXACIN [Concomitant]

REACTIONS (2)
  - POLYNEUROPATHY [None]
  - RETINAL DISORDER [None]
